FAERS Safety Report 5345204-9 (Version None)
Quarter: 2007Q2

REPORT INFORMATION
  Report Type: 
  Country: None (occurrence: None)
  Receive Date: 20070605
  Receipt Date: 20070525
  Transmission Date: 20071010
  Serious: Yes (Other)
  Sender: FDA-Public Use
  Company Number: PHFR2007GB01337

PATIENT
  Age: 42 Year
  Sex: Female

DRUGS (2)
  1. VOLTAREN [Suspect]
     Indication: RHEUMATOID ARTHRITIS
     Dosage: 100MG DAILY
     Route: 048
     Dates: start: 20050301, end: 20061201
  2. PREDNISOLONE [Suspect]
     Indication: RHEUMATOID ARTHRITIS
     Dosage: 7.5MG DAILY
     Route: 048
     Dates: start: 20050301, end: 20061201

REACTIONS (2)
  - DRUG EXPOSURE DURING PREGNANCY [None]
  - INFERTILITY FEMALE [None]
